FAERS Safety Report 4457383-6 (Version None)
Quarter: 2004Q3

REPORT INFORMATION
  Report Type: 
  Country: None (occurrence: None)
  Receive Date: 20040922
  Receipt Date: 20040909
  Transmission Date: 20050211
  Serious: No
  Sender: FDA-Public Use
  Company Number: USA030434324

PATIENT
  Age: 81 Year
  Sex: Male
  Weight: 59 kg

DRUGS (10)
  1. FORTEO [Suspect]
     Indication: OSTEOPOROSIS
     Dosage: 20 UG/ 1 DAY
     Dates: start: 20030327, end: 20040901
  2. ARICEPT [Concomitant]
  3. CALCIUM [Concomitant]
  4. ASPIRIN [Concomitant]
  5. CELEBREX [Concomitant]
  6. DOXYCYCLINE [Concomitant]
  7. GARLIC [Concomitant]
  8. GLUCOSAMINE [Concomitant]
  9. PLAVIX [Concomitant]
  10. RABEPRAZOLE SODIUM [Concomitant]

REACTIONS (11)
  - BONE DENSITY DECREASED [None]
  - DIFFICULTY IN WALKING [None]
  - EMPHYSEMA [None]
  - EXOSTOSIS [None]
  - FRACTURE [None]
  - MEDICATION ERROR [None]
  - MUSCLE CRAMP [None]
  - OEDEMA PERIPHERAL [None]
  - PAIN [None]
  - PHARMACEUTICAL PRODUCT COMPLAINT [None]
  - WALKING AID USER [None]
